FAERS Safety Report 9292862 (Version 2)
Quarter: 2013Q3

REPORT INFORMATION
  Report Type: Report from Study
  Country: CA (occurrence: CA)
  Receive Date: 20130516
  Receipt Date: 20130701
  Transmission Date: 20140515
  Serious: Yes (Hospitalization, Other)
  Sender: FDA-Public Use
  Company Number: CA-JNJFOC-20130216089

PATIENT
  Age: 41 Year
  Sex: Male
  Weight: 84 kg

DRUGS (3)
  1. REMICADE [Suspect]
     Indication: COLITIS ULCERATIVE
     Route: 042
     Dates: start: 20130322
  2. REMICADE [Suspect]
     Indication: COLITIS ULCERATIVE
     Dosage: 100MGX4 VIALS
     Route: 042
     Dates: start: 20070525
  3. IMURAN [Concomitant]
     Dosage: 4 VIALS
     Route: 048

REACTIONS (2)
  - Epididymitis [Unknown]
  - Vasectomy [Not Recovered/Not Resolved]
